FAERS Safety Report 7990700-9 (Version None)
Quarter: 2011Q4

REPORT INFORMATION
  Report Type: 
  Country: None (occurrence: None)
  Receive Date: 20111219
  Receipt Date: 20111219
  Transmission Date: 20120403
  Serious: Yes (Life-Threatening, Hospitalization)
  Sender: FDA-Public Use
  Company Number: None

PATIENT
  Age: 95 Year
  Sex: Female
  Weight: 70.76 kg

DRUGS (4)
  1. DIOVAN [Concomitant]
     Route: 048
  2. POTASSIUM CHLORIDE [Concomitant]
     Route: 048
  3. LASIX [Suspect]
     Indication: OEDEMA PERIPHERAL
     Dosage: 40 MG
     Route: 048
     Dates: start: 20111027, end: 20111109
  4. ARICEPT [Concomitant]
     Route: 048

REACTIONS (11)
  - BLOOD SODIUM DECREASED [None]
  - ATRIAL FIBRILLATION [None]
  - FATIGUE [None]
  - ACUTE MYOCARDIAL INFARCTION [None]
  - DEHYDRATION [None]
  - HYPOPHAGIA [None]
  - HYPOTENSION [None]
  - VOMITING [None]
  - BLOOD POTASSIUM DECREASED [None]
  - LETHARGY [None]
  - RENAL FAILURE [None]
